FAERS Safety Report 6554977-9 (Version None)
Quarter: 2010Q1

REPORT INFORMATION
  Report Type: 
  Country: None (occurrence: None)
  Receive Date: 20100126
  Receipt Date: 20100126
  Transmission Date: 20100710
  Serious: Yes (Hospitalization, Other)
  Sender: FDA-Public Use
  Company Number: None

PATIENT
  Age: 49 Year
  Sex: Male
  Weight: 61.2356 kg

DRUGS (1)
  1. AUGMENTIN [Suspect]
     Indication: CELLULITIS
     Dosage: 875-MG TABLETS TWICE DAILY PO
     Route: 048
     Dates: start: 20090217, end: 20090221

REACTIONS (1)
  - GRAND MAL CONVULSION [None]
